FAERS Safety Report 14110752 (Version 1)
Quarter: 2017Q4

REPORT INFORMATION
  Report Type: Other
  Country: CA (occurrence: CA)
  Receive Date: 20171020
  Receipt Date: 20171020
  Transmission Date: 20180321
  Serious: Yes (Other)
  Sender: FDA-Public Use
  Company Number: CA-APOTEX-2017AP019856

PATIENT
  Age: 69 Year
  Sex: Male

DRUGS (4)
  1. EMTRICITABINE [Suspect]
     Active Substance: EMTRICITABINE
     Indication: HIV INFECTION
     Dosage: UNK
     Route: 065
  2. TRUVADA [Suspect]
     Active Substance: EMTRICITABINE\TENOFOVIR DISOPROXIL FUMARATE
     Indication: HIV INFECTION
     Dosage: UNK
     Route: 065
  3. APO-LAMIVUDINE [Suspect]
     Active Substance: LAMIVUDINE
     Indication: HEPATITIS B
     Dosage: UNK
     Route: 065
  4. APO-LAMIVUDINE [Suspect]
     Active Substance: LAMIVUDINE
     Indication: HIV INFECTION

REACTIONS (1)
  - Viral mutation identified [Not Recovered/Not Resolved]
